FAERS Safety Report 25224773 (Version 1)
Quarter: 2025Q2

REPORT INFORMATION
  Report Type: Spontaneous
  Country: FR (occurrence: FR)
  Receive Date: 20250422
  Receipt Date: 20250422
  Transmission Date: 20250717
  Serious: Yes (Death)
  Sender: ACCORD
  Company Number: None

PATIENT
  Age: 73 Year
  Sex: Male
  Weight: 59.9 kg

DRUGS (1)
  1. OXALIPLATIN [Suspect]
     Active Substance: OXALIPLATIN
     Indication: Neoplasm malignant
     Dates: start: 20230425, end: 20231024

REACTIONS (2)
  - Pulmonary fibrosis [Fatal]
  - Pulmonary interstitial emphysema syndrome [Fatal]

NARRATIVE: CASE EVENT DATE: 20231126
